FAERS Safety Report 21166596 (Version 1)
Quarter: 2022Q3

REPORT INFORMATION
  Report Type: Spontaneous
  Country: JP (occurrence: JP)
  Receive Date: 20220803
  Receipt Date: 20220803
  Transmission Date: 20221027
  Serious: Yes (Other)
  Sender: FDA-Public Use
  Company Number: JP-TAKEDA-2022TJP037929

PATIENT

DRUGS (1)
  1. ZEJULA [Suspect]
     Active Substance: NIRAPARIB
     Indication: Ovarian cancer stage IV
     Dosage: 200 MG, QD
     Route: 048
     Dates: start: 20220106

REACTIONS (4)
  - Ovarian cancer [Not Recovered/Not Resolved]
  - Disease progression [Not Recovered/Not Resolved]
  - Sinus tachycardia [Recovered/Resolved]
  - Schizophreniform disorder [Not Recovered/Not Resolved]

NARRATIVE: CASE EVENT DATE: 20220330
